FAERS Safety Report 5052681-X (Version None)
Quarter: 2006Q2

REPORT INFORMATION
  Report Type: 
  Country: None (occurrence: None)
  Receive Date: 20060614
  Receipt Date: 20060306
  Transmission Date: 20061013
  Serious: Yes (Other)
  Sender: FDA-Public Use
  Company Number: 439414

PATIENT
  Sex: Female

DRUGS (1)
  1. BONIVA [Suspect]
     Indication: DRUG USE FOR UNKNOWN INDICATION
     Dates: start: 20060115

REACTIONS (5)
  - BACK PAIN [None]
  - BONE PAIN [None]
  - CONSTIPATION [None]
  - DIFFICULTY IN WALKING [None]
  - HEADACHE [None]
